FAERS Safety Report 18822632 (Version 2)
Quarter: 2021Q1

REPORT INFORMATION
  Report Type: Spontaneous
  Country: TR (occurrence: TR)
  Receive Date: 20210202
  Receipt Date: 20210218
  Transmission Date: 20210419
  Serious: Yes (Other)
  Sender: FDA-Public Use
  Company Number: TR-AMGEN-TURSP2021015022

PATIENT

DRUGS (2)
  1. ETANERCEPT [Suspect]
     Active Substance: ETANERCEPT
     Indication: JUVENILE IDIOPATHIC ARTHRITIS
     Dosage: UNK
     Route: 058
  2. ADALIMUMAB [Suspect]
     Active Substance: ADALIMUMAB
     Indication: JUVENILE IDIOPATHIC ARTHRITIS
     Dosage: UNK
     Route: 058

REACTIONS (13)
  - Anaphylactic reaction [Unknown]
  - Impetigo [Unknown]
  - Pneumonia [Unknown]
  - Rash erythematous [Unknown]
  - Lymphopenia [Unknown]
  - Upper respiratory tract infection [Unknown]
  - Injection site reaction [Unknown]
  - Abscess [Unknown]
  - Oral herpes [Unknown]
  - Haemolytic anaemia [Unknown]
  - Liver function test increased [Unknown]
  - Thrombocytopenia [Unknown]
  - Urinary tract infection [Unknown]
